FAERS Safety Report 10253197 (Version 2)
Quarter: 2014Q2

REPORT INFORMATION
  Report Type: Spontaneous
  Country: JP (occurrence: JP)
  Receive Date: 20140623
  Receipt Date: 20140627
  Transmission Date: 20141212
  Serious: Yes (Other)
  Sender: FDA-Public Use
  Company Number: JP-BRISTOL-MYERS SQUIBB COMPANY-21059662

PATIENT
  Sex: Female

DRUGS (2)
  1. METGLUCO [Suspect]
     Indication: DIABETES MELLITUS
     Route: 048
  2. JANUVIA [Concomitant]
     Route: 048

REACTIONS (1)
  - Rhabdomyolysis [Recovered/Resolved]
